FAERS Safety Report 10068768 (Version 2)
Quarter: 2014Q2

REPORT INFORMATION
  Report Type: Report from Study
  Country: JP (occurrence: JP)
  Receive Date: 20140409
  Receipt Date: 20140616
  Transmission Date: 20141212
  Serious: No
  Sender: FDA-Public Use
  Company Number: JP-ABBVIE-14P-087-1223556-00

PATIENT
  Age: 48 Year
  Sex: Female
  Weight: 42 kg

DRUGS (9)
  1. HUMIRA [Suspect]
     Indication: CROHN^S DISEASE
     Route: 058
     Dates: start: 20130729, end: 20130729
  2. HUMIRA [Suspect]
     Dates: start: 20130812, end: 20130812
  3. HUMIRA [Suspect]
     Dates: start: 20130826, end: 20140101
  4. CLOSTRIDIUM BUTYRICUM [Concomitant]
     Indication: CROHN^S DISEASE
     Route: 048
  5. CAMOSTAT MESILATE [Concomitant]
     Indication: PRODUCT USED FOR UNKNOWN INDICATION
     Route: 048
  6. DIGESTIVE ENZYME PREPARATIONS [Concomitant]
     Indication: CROHN^S DISEASE
     Route: 048
  7. ETHYL LOFLAZEPATE [Concomitant]
     Indication: PRODUCT USED FOR UNKNOWN INDICATION
     Route: 048
  8. LOPERAMIDE HYDROCHLORIDE [Concomitant]
     Indication: CROHN^S DISEASE
     Route: 048
  9. ENTERAL NUTRITION THERAPY [Concomitant]
     Indication: CROHN^S DISEASE

REACTIONS (1)
  - Cellulitis [Recovered/Resolved]
